FAERS Safety Report 4651266-4 (Version None)
Quarter: 2005Q2

REPORT INFORMATION
  Report Type: 
  Country: None (occurrence: None)
  Receive Date: 20050503
  Receipt Date: 20050415
  Transmission Date: 20051028
  Serious: Yes (Hospitalization, Other)
  Sender: FDA-Public Use
  Company Number: PHEH2005US04406

PATIENT
  Age: 74 Year
  Sex: Female

DRUGS (18)
  1. AREDIA [Suspect]
     Indication: METASTASES TO BONE
     Dosage: 90 MG OVER 2HRS Q4WKS
     Dates: start: 19991001, end: 20040506
  2. VICODIN [Concomitant]
     Indication: PAIN
     Dosage: 5MG 1-2 TABS Q4H PRN
  3. ASPIRIN [Concomitant]
     Indication: PROPHYLAXIS
     Dosage: 325 MG, QD
  4. NIASPAN [Concomitant]
     Dosage: 1000 MG, QD
  5. FOSAMAX [Concomitant]
     Indication: OSTEOPOROSIS
     Dosage: 70 MG, QW
  6. FLONASE [Concomitant]
     Indication: SINUS CONGESTION
     Dosage: UNK, PRN
  7. ATROVENT [Concomitant]
     Indication: SINUS CONGESTION
     Dosage: UNK, PRN
  8. VITAMIN E [Concomitant]
  9. VITAMIN C [Concomitant]
  10. VITAMIN B12 NOS W/VITAMIN B6 [Concomitant]
  11. VITAMIN A AND D [Concomitant]
  12. FOLIC ACID [Concomitant]
  13. DIOVAN HCT [Concomitant]
     Indication: HYPERTENSION
     Dosage: 1 CAPSULE QD
  14. SYNTHROID [Concomitant]
     Indication: HYPOTHYROIDISM
     Dosage: 25 MCG QD
  15. TAMOXIFEN CITRATE [Concomitant]
     Indication: BREAST CANCER
     Dosage: 10 MG, BID
     Dates: start: 19990901
  16. METHOTREXATE [Concomitant]
     Indication: ARTHRITIS
     Dosage: 2.5MG (7) TABS QWK
  17. ALPRAZOLAM [Concomitant]
     Indication: ANXIETY
     Dosage: UNK MG, PRN
  18. VERELAN [Concomitant]

REACTIONS (7)
  - ACTINOMYCOSIS [None]
  - ASEPTIC NECROSIS BONE [None]
  - BLOOD CREATININE INCREASED [None]
  - BONE DISORDER [None]
  - HYPERBARIC OXYGEN THERAPY [None]
  - OSTEOMYELITIS [None]
  - RENAL FAILURE CHRONIC [None]
